FAERS Safety Report 8108296-X (Version None)
Quarter: 2012Q1

REPORT INFORMATION
  Report Type: 
  Country: None (occurrence: None)
  Receive Date: 20120202
  Receipt Date: 20120123
  Transmission Date: 20120608
  Serious: Yes (Hospitalization)
  Sender: FDA-Public Use
  Company Number: PHHY2012DE006048

PATIENT
  Sex: Female
  Weight: 100 kg

DRUGS (7)
  1. BENAZEPRIL HCL AND HYDROCHLOROTHIAZIDE [Suspect]
     Dosage: 1 DF, QD
     Route: 048
     Dates: start: 20050901, end: 20111201
  2. RASILEZ HCT [Suspect]
     Dosage: 1 DF, QD
     Route: 048
  3. LEVEMIR [Concomitant]
     Route: 058
  4. JANUMET [Concomitant]
     Route: 048
     Dates: start: 20110701, end: 20111201
  5. METOPROLOL SUCCINATE [Concomitant]
     Route: 048
     Dates: start: 20070501, end: 20111201
  6. NOVORAPID FLEXPEN [Concomitant]
     Route: 058
     Dates: start: 20070901, end: 20111201
  7. AMLODIPIN MESILATE [Concomitant]
     Route: 048

REACTIONS (1)
  - CEREBROVASCULAR ACCIDENT [None]
